FAERS Safety Report 6521378-9 (Version None)
Quarter: 2009Q4

REPORT INFORMATION
  Report Type: 
  Country: None (occurrence: None)
  Receive Date: 20091230
  Receipt Date: 20091218
  Transmission Date: 20100525
  Serious: Yes (Hospitalization)
  Sender: FDA-Public Use
  Company Number: CA-JNJFOC-20091205803

PATIENT
  Sex: Female
  Weight: 65 kg

DRUGS (2)
  1. REMICADE [Suspect]
     Dosage: 400 MG EVERY 6-8 WEEKS
     Route: 042
  2. REMICADE [Suspect]
     Indication: CROHN'S DISEASE
     Dosage: 300 MG EVERY 6-8 WEEKS
     Route: 042

REACTIONS (3)
  - FOLLICULITIS [None]
  - FUNGAL INFECTION [None]
  - HERPES VIRUS INFECTION [None]
